FAERS Safety Report 5022664-4 (Version None)
Quarter: 2006Q2

REPORT INFORMATION
  Report Type: 
  Country: None (occurrence: None)
  Receive Date: 20060605
  Receipt Date: 20060524
  Transmission Date: 20061013
  Serious: Yes (Other)
  Sender: FDA-Public Use
  Company Number: DE200601005272

PATIENT
  Age: 55 Year
  Sex: Female

DRUGS (3)
  1. YENTREVE [Suspect]
     Indication: STRESS INCONTINENCE
     Dosage: SEE IMAGE
     Route: 048
     Dates: end: 20060123
  2. YENTREVE [Suspect]
     Indication: STRESS INCONTINENCE
     Dosage: SEE IMAGE
     Route: 048
     Dates: start: 20041201
  3. LORATADINE [Concomitant]

REACTIONS (2)
  - RETINAL PIGMENTATION [None]
  - VISUAL DISTURBANCE [None]
